FAERS Safety Report 6251606-9 (Version None)
Quarter: 2009Q2

REPORT INFORMATION
  Report Type: 
  Country: None (occurrence: None)
  Receive Date: 20090630
  Receipt Date: 20090630
  Transmission Date: 20091009
  Serious: Yes (Hospitalization, Disabling, Other)
  Sender: FDA-Public Use
  Company Number: ZA-RB-016538-09

PATIENT
  Age: 30 Year
  Sex: Male

DRUGS (2)
  1. SUBUTEX [Suspect]
     Indication: DRUG DEPENDENCE
     Route: 065
     Dates: start: 20060101
  2. SUBUTEX [Suspect]
     Route: 065

REACTIONS (1)
  - HALLUCINATION, AUDITORY [None]
